FAERS Safety Report 10961624 (Version 2)
Quarter: 2015Q3

REPORT INFORMATION
  Report Type: Spontaneous
  Country: GB (occurrence: GB)
  Receive Date: 20150327
  Receipt Date: 20150708
  Transmission Date: 20151125
  Serious: Yes (Congenital Anomaly)
  Sender: FDA-Public Use
  Company Number: GB-JNJFOC-20150318334

PATIENT

DRUGS (1)
  1. INFLIXIMAB, RECOMBINANT [Suspect]
     Active Substance: INFLIXIMAB
     Indication: RHEUMATIC DISORDER
     Route: 064

REACTIONS (2)
  - Foetal exposure during pregnancy [Unknown]
  - Congenital anomaly [Unknown]
